FAERS Safety Report 9856905 (Version 1)
Quarter: 2014Q1

REPORT INFORMATION
  Report Type: Spontaneous
  Country: US (occurrence: None)
  Receive Date: 20140128
  Receipt Date: 20140128
  Transmission Date: 20141002
  Serious: Yes (Death)
  Sender: FDA-Public Use
  Company Number: B0962772A

PATIENT
  Sex: 0

DRUGS (4)
  1. MELPHALAN (FORMULATION UNKNOWN) (GENERIC) MELPHALAN [Suspect]
     Indication: PRODUCT USED FOR UNKNOWN INDICATION
  2. PALIFERMIN [Suspect]
     Indication: MUCOSAL INFLAMMATION
  3. METHOTREXATE [Suspect]
     Indication: PROPHYLAXIS AGAINST GRAFT VERSUS HOST DISEASE
  4. TACROLIMUS [Suspect]
     Indication: PROPHYLAXIS AGAINST GRAFT VERSUS HOST DISEASE

REACTIONS (3)
  - Sepsis [None]
  - Stem cell transplant [None]
  - Therapeutic response decreased [None]
